FAERS Safety Report 13891132 (Version 1)
Quarter: 2017Q3

REPORT INFORMATION
  Report Type: Spontaneous
  Country: US (occurrence: None)
  Receive Date: 20170816
  Receipt Date: 20170816
  Transmission Date: 20171127
  Serious: Yes (Hospitalization)
  Sender: FDA-Public Use
  Company Number: None

PATIENT
  Age: 60 Year
  Sex: Female
  Weight: 79.2 kg

DRUGS (9)
  1. EPCLUSA [Suspect]
     Active Substance: SOFOSBUVIR\VELPATASVIR
     Indication: HEPATITIS C
     Dosage: 400-100MG QD PO
     Route: 048
     Dates: start: 20160929, end: 20161225
  2. SOFOSBUVIR-VELPATASVIR (EPCLUSA) [Concomitant]
  3. METHADONE [Concomitant]
     Active Substance: METHADONE HYDROCHLORIDE
  4. PROAIR HFA [Concomitant]
     Active Substance: ALBUTEROL SULFATE
  5. QVAR [Concomitant]
     Active Substance: BECLOMETHASONE DIPROPIONATE
  6. LASIX [Concomitant]
     Active Substance: FUROSEMIDE
  7. MOBIC [Concomitant]
     Active Substance: MELOXICAM
  8. POTASSIUM CHLORIDE. [Concomitant]
     Active Substance: POTASSIUM CHLORIDE
  9. SPIRONOLACTONE (ALDACTONE) [Concomitant]

REACTIONS (5)
  - Chills [None]
  - Pyrexia [None]
  - Nausea [None]
  - Subcutaneous abscess [None]
  - Hyponatraemia [None]

NARRATIVE: CASE EVENT DATE: 20161115
